FAERS Safety Report 8115370-0 (Version None)
Quarter: 2012Q1

REPORT INFORMATION
  Report Type: 
  Country: None (occurrence: None)
  Receive Date: 20120206
  Receipt Date: 20120206
  Transmission Date: 20120608
  Serious: No
  Sender: FDA-Public Use
  Company Number: None

PATIENT
  Age: 60 Year
  Sex: Female
  Weight: 83.461 kg

DRUGS (1)
  1. TERBINAFINE HCL [Suspect]
     Indication: ONYCHOMYCOSIS
     Dosage: 250 MG
     Route: 048
     Dates: start: 20120203, end: 20120203

REACTIONS (9)
  - CHILLS [None]
  - BODY TEMPERATURE INCREASED [None]
  - PAIN [None]
  - HYPOGLYCAEMIA [None]
  - FATIGUE [None]
  - OROPHARYNGEAL PAIN [None]
  - HEADACHE [None]
  - INITIAL INSOMNIA [None]
  - DIARRHOEA [None]
